FAERS Safety Report 19537936 (Version 1)
Quarter: 2021Q3

REPORT INFORMATION
  Report Type: Spontaneous
  Country: US (occurrence: US)
  Receive Date: 20210713
  Receipt Date: 20210713
  Transmission Date: 20211014
  Serious: Yes (Hospitalization)
  Sender: FDA-Public Use
  Company Number: None

PATIENT
  Age: 1 Year
  Sex: Male
  Weight: 9.53 kg

DRUGS (2)
  1. VIGABATRIN ORAL PACKET 500MG [Concomitant]
  2. VIGABATRIN. [Suspect]
     Active Substance: VIGABATRIN
     Indication: EPILEPSY
     Route: 048

REACTIONS (2)
  - Nasopharyngitis [None]
  - Bronchitis [None]

NARRATIVE: CASE EVENT DATE: 20210713
